FAERS Safety Report 8953287 (Version 2)
Quarter: 2013Q1

REPORT INFORMATION
  Report Type: Spontaneous
  Country: US (occurrence: US)
  Receive Date: 20121206
  Receipt Date: 20130128
  Transmission Date: 20140127
  Serious: Yes (Hospitalization)
  Sender: FDA-Public Use
  Company Number: US-BAYER-2012-126479

PATIENT
  Age: 35 Year
  Sex: Female
  Weight: 93.2 kg

DRUGS (14)
  1. YAZ [Suspect]
     Indication: POLYCYSTIC OVARIES
  2. MUSCLE RELAXANT [Concomitant]
  3. ALBUTEROL INHALER [Concomitant]
  4. ROCEPHIN [Concomitant]
  5. CELEBREX [Concomitant]
     Indication: PAIN
     Dosage: 200 MG DAILY AS NEEDED
     Route: 048
     Dates: start: 20111128, end: 20120124
  6. CELEBREX [Concomitant]
     Indication: RHEUMATOID ARTHRITIS
  7. ERYTHROMYCIN [Concomitant]
     Dosage: APPLY TO AFFECTED EYE TID
     Route: 047
     Dates: start: 20120130
  8. ZYRTEC [Concomitant]
     Dosage: 10 MG, DAILY
     Route: 048
     Dates: start: 20120130
  9. MOTRIN [Concomitant]
     Indication: PAIN
     Dosage: 800 MG, UNK
     Dates: start: 20120202
  10. MOTRIN [Concomitant]
     Indication: PAIN
  11. DIAZEPAM [Concomitant]
     Dosage: 5 MG, HS
     Route: 048
     Dates: start: 20120302
  12. TRAZODONE [Concomitant]
     Indication: INSOMNIA
     Dosage: 25 MG, HS
     Route: 048
     Dates: start: 20110425, end: 20120304
  13. CONCERTA [Concomitant]
     Indication: ATTENTION DEFICIT/HYPERACTIVITY DISORDER
     Dosage: 45 MG, DAILY
     Route: 048
     Dates: start: 20110616, end: 20120304
  14. LEXAPRO [Concomitant]
     Indication: ANXIETY
     Dosage: 5 MG, DAILY
     Route: 048
     Dates: start: 20120304

REACTIONS (2)
  - Pulmonary embolism [None]
  - Off label use [None]
